FAERS Safety Report 20138173 (Version 2)
Quarter: 2022Q1

REPORT INFORMATION
  Report Type: Report from Study
  Country: US (occurrence: US)
  Receive Date: 20211202
  Receipt Date: 20220104
  Transmission Date: 20220423
  Serious: Yes (Other)
  Sender: FDA-Public Use
  Company Number: US-AMGEN-USASL2021161913

PATIENT
  Age: 47 Year
  Sex: Male
  Weight: 90.249 kg

DRUGS (7)
  1. ENBREL [Suspect]
     Active Substance: ETANERCEPT
     Indication: Ankylosing spondylitis
     Dosage: 50 MILLIGRAM, QWK
     Route: 058
     Dates: start: 20210924
  2. MELOXICAM [Concomitant]
     Active Substance: MELOXICAM
  3. TORADOL [Concomitant]
     Active Substance: KETOROLAC TROMETHAMINE
     Indication: Pain
     Dosage: UNK
     Dates: start: 20211227
  4. VITAMIN B12 [Concomitant]
     Active Substance: CYANOCOBALAMIN
     Indication: Anaemia vitamin B12 deficiency
     Dosage: UNK
     Dates: start: 20211129
  5. MOBIC [Concomitant]
     Active Substance: MELOXICAM
  6. TYLENOL [Concomitant]
     Active Substance: ACETAMINOPHEN
     Indication: Pain
  7. IBUPROFEN [Concomitant]
     Active Substance: IBUPROFEN
     Indication: Pain

REACTIONS (7)
  - Loss of consciousness [Unknown]
  - Abscess intestinal [Unknown]
  - Ankylosing spondylitis [Unknown]
  - Intervertebral disc disorder [Unknown]
  - Osteoarthritis [Unknown]
  - Vertigo [Unknown]
  - Injection site rash [Recovered/Resolved]

NARRATIVE: CASE EVENT DATE: 20210901
